FAERS Safety Report 23885796 (Version 1)
Quarter: 2024Q2

REPORT INFORMATION
  Report Type: Spontaneous
  Country: US (occurrence: None)
  Receive Date: 20240522
  Receipt Date: 20240522
  Transmission Date: 20240716
  Serious: Yes (unspecified)
  Sender: FDA-Public Use
  Company Number: None

PATIENT
  Age: 68 Year
  Sex: Male
  Weight: 90 kg

DRUGS (1)
  1. XTANDI [Suspect]
     Active Substance: ENZALUTAMIDE
     Indication: Prostate cancer
     Dosage: 160 MG DAILY ORAL?
     Route: 048

REACTIONS (3)
  - Hypoaesthesia [None]
  - Hypoaesthesia [None]
  - Haematochezia [None]

NARRATIVE: CASE EVENT DATE: 20240401
